FAERS Safety Report 4366768-8 (Version None)
Quarter: 2004Q2

REPORT INFORMATION
  Report Type: 
  Country: None (occurrence: None)
  Receive Date: 20040528
  Receipt Date: 20040318
  Transmission Date: 20050107
  Serious: Yes (Hospitalization, Other)
  Sender: FDA-Public Use
  Company Number: PHBS2004JP03859

PATIENT
  Age: 28 Year
  Sex: Female

DRUGS (3)
  1. LAMISIL [Suspect]
     Indication: NAIL TINEA
     Dosage: 125 MG/DAY
     Route: 048
     Dates: start: 20030804, end: 20040224
  2. TAMIFLU [Suspect]
     Indication: INFLUENZA
     Dosage: 1 DF, QD
     Route: 048
     Dates: start: 20040225, end: 20040229
  3. ACETAMINOPHEN [Suspect]
     Indication: INFLUENZA
     Route: 048
     Dates: start: 20040225, end: 20040229

REACTIONS (10)
  - ANXIETY [None]
  - DEPRESSED LEVEL OF CONSCIOUSNESS [None]
  - DRUG INTERACTION [None]
  - ELECTROENCEPHALOGRAM ABNORMAL [None]
  - HEADACHE [None]
  - INFLUENZA [None]
  - MEMORY IMPAIRMENT [None]
  - PANCYTOPENIA [None]
  - PYREXIA [None]
  - WHITE BLOOD CELL COUNT DECREASED [None]
